FAERS Safety Report 19043838 (Version 1)
Quarter: 2021Q1

REPORT INFORMATION
  Report Type: Spontaneous
  Country: SI (occurrence: SI)
  Receive Date: 20210322
  Receipt Date: 20210322
  Transmission Date: 20210420
  Serious: Yes (Other)
  Sender: FDA-Public Use
  Company Number: NVSC2021SI056343

PATIENT
  Age: 50 Year
  Sex: Male

DRUGS (1)
  1. MIKTAN [Suspect]
     Active Substance: TAMSULOSIN HYDROCHLORIDE
     Indication: BENIGN PROSTATIC HYPERPLASIA
     Dosage: UNK
     Route: 065

REACTIONS (4)
  - Pollakiuria [Recovering/Resolving]
  - Benign prostatic hyperplasia [Recovered/Resolved]
  - Condition aggravated [Recovered/Resolved]
  - Urine output decreased [Recovered/Resolved]
